FAERS Safety Report 9163617 (Version 1)
Quarter: 2013Q1

REPORT INFORMATION
  Report Type: Spontaneous
  Country: US (occurrence: US)
  Receive Date: 20130314
  Receipt Date: 20130314
  Transmission Date: 20140127
  Serious: Yes (Hospitalization)
  Sender: FDA-Public Use
  Company Number: US-ABBOTT-13P-163-1059827-00

PATIENT
  Sex: Male
  Weight: 68.1 kg

DRUGS (6)
  1. HUMIRA [Suspect]
     Indication: CROHN^S DISEASE
     Dates: start: 2010
  2. PENTAZA [Concomitant]
     Indication: CROHN^S DISEASE
  3. TANDOM PLUS [Concomitant]
     Indication: ANAEMIA
  4. UNSPECIFIED INGREDIENT [Concomitant]
     Indication: CROHN^S DISEASE
  5. ALBUTEROL [Concomitant]
     Indication: ASTHMA
     Dosage: INHALER
  6. ZYRTEC [Concomitant]
     Indication: HYPERSENSITIVITY

REACTIONS (2)
  - Large intestinal obstruction [Recovered/Resolved]
  - Off label use [Not Recovered/Not Resolved]
